FAERS Safety Report 6108728-2 (Version None)
Quarter: 2009Q1

REPORT INFORMATION
  Report Type: 
  Country: None (occurrence: None)
  Receive Date: 20090306
  Receipt Date: 20090306
  Transmission Date: 20090719
  Serious: Yes (Other)
  Sender: FDA-Public Use
  Company Number: None

PATIENT
  Age: 57 Year
  Sex: Male

DRUGS (1)
  1. CHANTIX [Suspect]
     Indication: SMOKING CESSATION THERAPY
     Dosage: 1 MG TWICE DAILY ORAL
     Route: 048
     Dates: start: 20081201, end: 20090301

REACTIONS (2)
  - DRUG EFFECT DECREASED [None]
  - GINGIVAL BLEEDING [None]
